FAERS Safety Report 9463996 (Version 1)
Quarter: 2013Q3

REPORT INFORMATION
  Report Type: Spontaneous
  Country: US (occurrence: US)
  Receive Date: 20130819
  Receipt Date: 20130819
  Transmission Date: 20140515
  Serious: No
  Sender: FDA-Public Use
  Company Number: US-009507513-1308USA007941

PATIENT
  Sex: 0

DRUGS (2)
  1. PROVENTIL [Suspect]
     Indication: COUGH
     Dosage: 2 PUFFS BY MOUTH EVERY 4 OR 6 HOURS AS NEEDED
     Route: 055
     Dates: start: 20130531
  2. PROVENTIL [Suspect]
     Indication: WHEEZING

REACTIONS (3)
  - Drug dose omission [Unknown]
  - Product quality issue [Unknown]
  - No adverse event [Unknown]
